FAERS Safety Report 24305968 (Version 1)
Quarter: 2024Q3

REPORT INFORMATION
  Report Type: Spontaneous
  Country: US (occurrence: US)
  Receive Date: 20240911
  Receipt Date: 20240911
  Transmission Date: 20241016
  Serious: No
  Sender: ALVOGEN
  Company Number: US-ALVOGEN-2023092545

PATIENT
  Sex: Female

DRUGS (1)
  1. GRALISE [Suspect]
     Active Substance: GABAPENTIN
     Indication: Neuralgia
     Dosage: 600 MG?EXP. DATE: UU-MAY-2026 ?GTIN# 00352427806902 ?WAS PRESCRIBED A MONTH AGO

REACTIONS (3)
  - Product residue present [Unknown]
  - Product quality issue [Unknown]
  - Off label use [Unknown]
